FAERS Safety Report 4415288-0 (Version None)
Quarter: 2004Q3

REPORT INFORMATION
  Report Type: 
  Country: None (occurrence: None)
  Receive Date: 20040730
  Receipt Date: 20040720
  Transmission Date: 20050211
  Serious: Yes (Hospitalization)
  Sender: FDA-Public Use
  Company Number: 04P-056-0267637-00

PATIENT
  Age: 43 Year
  Sex: Male
  Weight: 62 kg

DRUGS (12)
  1. NORVIR [Suspect]
     Dosage: PER ORAL
     Route: 048
     Dates: start: 19991115
  2. CRIXIVAN [Suspect]
     Dosage: PER ORAL
     Route: 048
     Dates: start: 19991115
  3. VIRAMUNE [Suspect]
     Dosage: PER ORAL
     Route: 048
     Dates: start: 19990620
  4. COMBIVIR [Suspect]
     Dosage: PER ORAL
     Route: 048
     Dates: start: 19970915
  5. AVLOCARDYL LP (PROPANOLOL) [Suspect]
     Indication: HYPERTENSION
     Dosage: 160 MG, 1 IN 1 D, PER ORAL
     Route: 048
  6. GEMFIBROZIL [Suspect]
     Indication: HYPERLIPIDAEMIA
     Dosage: 450 MG, 1 IN 1 D, PER ORAL
     Route: 048
  7. ZOVIRAX [Concomitant]
  8. TERBUTALINE SULFATE [Concomitant]
  9. ACETAMINOPHEN [Concomitant]
  10. BUDESONIDE [Concomitant]
  11. LOPERAMIDE HCL [Concomitant]
  12. ZOPICLONE [Concomitant]

REACTIONS (3)
  - ANGINA UNSTABLE [None]
  - CARDIAC DISORDER [None]
  - CORONARY ARTERY DISEASE [None]
